FAERS Safety Report 20065616 (Version 2)
Quarter: 2021Q4

REPORT INFORMATION
  Report Type: Spontaneous
  Country: US (occurrence: US)
  Receive Date: 20211113
  Receipt Date: 20211116
  Transmission Date: 20220304
  Serious: Yes (Other)
  Sender: FDA-Public Use
  Company Number: US-TEVA-2021-US-1975423

PATIENT
  Sex: Female

DRUGS (1)
  1. CARTIA XT [Suspect]
     Active Substance: DILTIAZEM HYDROCHLORIDE
     Dosage: FORM OF ADMIN: EXTENDED-RELEASE CAPSULES
     Route: 065

REACTIONS (7)
  - Cerebrovascular accident [Unknown]
  - Weight increased [Unknown]
  - Muscle spasms [Unknown]
  - Swelling [Unknown]
  - Blood glucose increased [Unknown]
  - Drug ineffective [Unknown]
  - Nausea [Unknown]
